FAERS Safety Report 10456882 (Version 1)
Quarter: 2014Q3

REPORT INFORMATION
  Report Type: Spontaneous
  Country: CA (occurrence: None)
  Receive Date: 20140912
  Receipt Date: 20140912
  Transmission Date: 20150326
  Serious: Yes (Hospitalization, Other)
  Sender: FDA-Public Use
  Company Number: 2014JUB00129

PATIENT
  Age: 6 Month
  Sex: Female
  Weight: 6.5 kg

DRUGS (2)
  1. ESCITALOPRAM [Suspect]
     Active Substance: ESCITALOPRAM OXALATE
     Indication: DEPRESSION
     Route: 063
  2. BUPROPION [Suspect]
     Active Substance: BUPROPION
     Indication: DEPRESSION
     Route: 063

REACTIONS (10)
  - Seizure like phenomena [None]
  - Sleep disorder [None]
  - Exposure during breast feeding [None]
  - Hypertonia [None]
  - Drug screen positive [None]
  - Drug interaction [None]
  - Vomiting [None]
  - Cyanosis [None]
  - Altered state of consciousness [None]
  - Somnolence [None]
